FAERS Safety Report 6233257-5 (Version None)
Quarter: 2009Q2

REPORT INFORMATION
  Report Type: 
  Country: None (occurrence: None)
  Receive Date: 20090612
  Receipt Date: 20090602
  Transmission Date: 20091009
  Serious: Yes (Death)
  Sender: FDA-Public Use
  Company Number: US-WYE-H08944509

PATIENT
  Age: 17 Year
  Sex: Female

DRUGS (6)
  1. PROMETHAZINE HCL [Suspect]
     Dates: start: 20090101
  2. DIAZEPAM [Suspect]
     Dosage: OVERDOSE AMOUNT UNKNOWN
     Dates: start: 20090119, end: 20090119
  3. MORPHINE [Suspect]
     Dosage: OVERDOSE AMOUNT UNKNOWN
     Dates: start: 20090119, end: 20090119
  4. TEMAZEPAM     (TEMAZEPAM) CAPSULE [Suspect]
     Dosage: OVERDOSE AMOUNT UNKNOWN
     Dates: start: 20090119, end: 20090119
  5. CODEINE SUL TAB [Concomitant]
  6. MARIJUANA            (CANNABIS) [Concomitant]

REACTIONS (7)
  - ACCIDENTAL OVERDOSE [None]
  - BRAIN OEDEMA [None]
  - DRUG TOXICITY [None]
  - PULMONARY CONGESTION [None]
  - PULMONARY OEDEMA [None]
  - TOXICOLOGIC TEST ABNORMAL [None]
  - UNRESPONSIVE TO STIMULI [None]
